FAERS Safety Report 11738440 (Version 1)
Quarter: 2015Q4

REPORT INFORMATION
  Report Type: Spontaneous
  Country: US (occurrence: US)
  Receive Date: 20151110
  Receipt Date: 20151110
  Transmission Date: 20160304
  Serious: No
  Sender: FDA-Public Use
  Company Number: US-ELI_LILLY_AND_COMPANY-US201202003070

PATIENT
  Sex: Female

DRUGS (11)
  1. FORTEO [Suspect]
     Active Substance: TERIPARATIDE
     Dosage: 20 UG, QOD
  2. VITAMINS [Concomitant]
     Active Substance: VITAMINS
  3. FORTEO [Suspect]
     Active Substance: TERIPARATIDE
     Dosage: 20 UG, QOD
  4. FOSAMAX [Concomitant]
     Active Substance: ALENDRONATE SODIUM
  5. FORTEO [Suspect]
     Active Substance: TERIPARATIDE
     Dosage: 20 UG, QOD
  6. ACTONEL [Concomitant]
     Active Substance: RISEDRONATE SODIUM
  7. FORTEO [Suspect]
     Active Substance: TERIPARATIDE
     Dosage: 20 UG, QOD
  8. CALCIUM [Concomitant]
     Active Substance: CALCIUM
  9. FORTEO [Suspect]
     Active Substance: TERIPARATIDE
     Dosage: 20 UG, QOD
     Dates: start: 20110801
  10. BONIVA [Concomitant]
     Active Substance: IBANDRONATE SODIUM
  11. FORTEO [Suspect]
     Active Substance: TERIPARATIDE
     Indication: OSTEOPOROSIS
     Dosage: 20 UG, QD
     Dates: start: 201105

REACTIONS (11)
  - Intervertebral disc degeneration [Unknown]
  - Medication error [Unknown]
  - Laceration [Unknown]
  - Rash [Recovered/Resolved]
  - Herpes zoster [Unknown]
  - Fall [Unknown]
  - Arthropod sting [Unknown]
  - Hair colour changes [Unknown]
  - Hair texture abnormal [Unknown]
  - Anxiety [Unknown]
  - Injection site bruising [Unknown]

NARRATIVE: CASE EVENT DATE: 2011
